FAERS Safety Report 10151254 (Version 1)
Quarter: 2014Q2

REPORT INFORMATION
  Report Type: Spontaneous
  Country: US (occurrence: US)
  Receive Date: 20140502
  Receipt Date: 20140502
  Transmission Date: 20141212
  Serious: No
  Sender: FDA-Public Use
  Company Number: US-ASTRAZENECA-2014SE09536

PATIENT
  Age: 32 Year
  Sex: Female

DRUGS (3)
  1. PRILOSEC OTC [Suspect]
     Route: 048
     Dates: start: 20140206, end: 20140206
  2. THYROID THERAPY [Concomitant]
     Dosage: UNKNOWN
  3. METFORMIN [Concomitant]
     Dosage: UNKNOWN

REACTIONS (3)
  - Tongue pruritus [Not Recovered/Not Resolved]
  - Glossodynia [Not Recovered/Not Resolved]
  - Hypoaesthesia oral [Not Recovered/Not Resolved]
